FAERS Safety Report 6432631-1 (Version None)
Quarter: 2009Q4

REPORT INFORMATION
  Report Type: 
  Country: None (occurrence: None)
  Receive Date: 20091109
  Receipt Date: 20091104
  Transmission Date: 20100525
  Serious: Yes (Other)
  Sender: FDA-Public Use
  Company Number: US-BAYER-200916323BCC

PATIENT
  Age: 19 Year
  Sex: Female
  Weight: 49 kg

DRUGS (4)
  1. MIDOL [Suspect]
     Indication: DYSMENORRHOEA
     Dosage: UNIT DOSE: 1 DF
     Route: 048
     Dates: start: 20091102
  2. PEPTO BISMOL [Concomitant]
     Route: 065
     Dates: start: 20091102
  3. MELATONIN [Concomitant]
     Route: 065
     Dates: start: 20091102
  4. MAGNESIUM [Concomitant]
     Route: 065
     Dates: start: 20091102

REACTIONS (4)
  - FAECES DISCOLOURED [None]
  - FEELING JITTERY [None]
  - INFLUENZA LIKE ILLNESS [None]
  - OROPHARYNGEAL PAIN [None]
